FAERS Safety Report 8973857 (Version 1)
Quarter: 2012Q4

REPORT INFORMATION
  Report Type: 
  Country: US (occurrence: US)
  Receive Date: 20121218
  Receipt Date: 20121218
  Transmission Date: 20130627
  Serious: Yes (Other)
  Sender: FDA-Public Use
  Company Number: US-BRISTOL-MYERS SQUIBB COMPANY-16892960

PATIENT
  Age: 45 Year

DRUGS (2)
  1. ABILIFY [Suspect]
  2. CYMBALTA [Suspect]
     Indication: DEPRESSION
     Dosage: Started with 90mg
Caps

REACTIONS (1)
  - Suicidal ideation [Unknown]
